FAERS Safety Report 8965470 (Version 1)
Quarter: 2012Q4

REPORT INFORMATION
  Report Type: 
  Country: US (occurrence: US)
  Receive Date: 20121213
  Receipt Date: 20121213
  Transmission Date: 20130627
  Serious: Yes (Other)
  Sender: FDA-Public Use
  Company Number: US-ASTELLAS-2012US012001

PATIENT
  Sex: Male
  Weight: 66 kg

DRUGS (15)
  1. VESICARE [Suspect]
     Indication: PRODUCT USED FOR UNKNOWN INDICATION
     Dosage: 5 mg, bid
     Route: 048
  2. VIAGRA [Suspect]
     Indication: ERECTILE DYSFUNCTION
     Dosage: 100 mg, prn
  3. LISINOPRIL [Concomitant]
     Indication: PRODUCT USED FOR UNKNOWN INDICATION
     Dosage: 20 mg, UID/QD
     Route: 065
  4. ALUMINIUM CHLORIDE [Concomitant]
     Indication: PRODUCT USED FOR UNKNOWN INDICATION
     Dosage: UNK
     Route: 065
  5. PEPCID                             /00706001/ [Concomitant]
     Indication: GASTROOESOPHAGEAL REFLUX DISEASE
     Dosage: 40 mg, UID/QD
     Route: 065
  6. PEPCID                             /00706001/ [Concomitant]
     Indication: GASTRIC DISORDER
  7. PROZAC [Concomitant]
     Indication: ANXIETY
     Dosage: 20 mg, UID/QD
     Route: 065
  8. SYNTHROID [Concomitant]
     Indication: THYROID DISORDER
     Dosage: 88 ug, UID/QD
     Route: 065
  9. COLACE [Concomitant]
     Dosage: 200 mg, Unknown/D
     Route: 065
  10. KLONOPIN [Concomitant]
     Indication: ANXIETY
     Dosage: 2 mg, bid
     Route: 065
  11. PRILOSEC                           /00661201/ [Concomitant]
     Indication: GASTROOESOPHAGEAL REFLUX DISEASE
     Dosage: 40 mg, UID/QD
     Route: 065
  12. PRILOSEC                           /00661201/ [Concomitant]
     Indication: GASTRIC DISORDER
  13. COX MULTIVITAMINS [Concomitant]
     Indication: PRODUCT USED FOR UNKNOWN INDICATION
     Dosage: UNK
     Route: 065
  14. SODIUM CHLORIDE [Concomitant]
     Indication: BLOOD SODIUM DECREASED
     Dosage: 1 g, UID/QD
     Route: 065
  15. VITAMIN D                          /00107901/ [Concomitant]
     Indication: VITAMIN D DECREASED
     Dosage: 2000 mg, UID/QD
     Route: 065

REACTIONS (3)
  - Inappropriate schedule of drug administration [Unknown]
  - Neoplasm malignant [Recovered/Resolved]
  - Constipation [Unknown]
